FAERS Safety Report 10221903 (Version 2)
Quarter: 2014Q2

REPORT INFORMATION
  Report Type: Spontaneous
  Country: US (occurrence: US)
  Receive Date: 20140606
  Receipt Date: 20140606
  Transmission Date: 20141212
  Serious: No
  Sender: FDA-Public Use
  Company Number: US-BIOMARINAP-US-2013-101807

PATIENT
  Sex: Male
  Weight: 60.3 kg

DRUGS (5)
  1. NAGLAZYME [Suspect]
     Indication: MUCOPOLYSACCHARIDOSIS VI
     Dosage: 60 MG, QW
     Route: 041
     Dates: start: 20050818
  2. MOTRIN [Concomitant]
     Indication: PREMEDICATION
     Dosage: 200 MG, UNK
     Route: 048
  3. CLARITIN                           /00413701/ [Concomitant]
     Indication: PREMEDICATION
     Dosage: 10 MG, UNK
     Route: 048
  4. KEPPRA [Concomitant]
     Indication: PRODUCT USED FOR UNKNOWN INDICATION
     Dosage: 500 MG, BID
     Route: 048
  5. ZOLOFT [Concomitant]
     Indication: PRODUCT USED FOR UNKNOWN INDICATION
     Dosage: 100 MG, QD
     Route: 048

REACTIONS (2)
  - Inguinal hernia [Not Recovered/Not Resolved]
  - Groin pain [Not Recovered/Not Resolved]
